FAERS Safety Report 13669962 (Version 1)
Quarter: 2017Q2

REPORT INFORMATION
  Report Type: Spontaneous
  Country: US (occurrence: US)
  Receive Date: 20170620
  Receipt Date: 20170620
  Transmission Date: 20170830
  Serious: Yes (Hospitalization, Other)
  Sender: FDA-Public Use
  Company Number: -SA-2017SA109398

PATIENT
  Age: 18 Year
  Sex: Male

DRUGS (5)
  1. FILGRASTIM [Suspect]
     Active Substance: FILGRASTIM
     Route: 065
  2. IDARUBICIN [Suspect]
     Active Substance: IDARUBICIN
     Route: 065
  3. FLUDARA [Suspect]
     Active Substance: FLUDARABINE PHOSPHATE
     Route: 065
  4. DASATINIB [Suspect]
     Active Substance: DASATINIB
     Route: 065
  5. CYTARABINE. [Suspect]
     Active Substance: CYTARABINE
     Route: 065

REACTIONS (2)
  - Pleural effusion [Unknown]
  - Pneumonia [Unknown]
